FAERS Safety Report 6336263-5 (Version None)
Quarter: 2009Q3

REPORT INFORMATION
  Report Type: 
  Country: None (occurrence: None)
  Receive Date: 20090901
  Receipt Date: 20090827
  Transmission Date: 20100115
  Serious: Yes (Other)
  Sender: FDA-Public Use
  Company Number: PHHY2009BR33992

PATIENT
  Age: 57 Year
  Sex: Male
  Weight: 126 kg

DRUGS (3)
  1. SANDIMMUNE [Suspect]
     Indication: PSORIASIS
     Dosage: 2 CAPSULES IN THE MORNING
     Route: 048
  2. REMICADE [Concomitant]
     Indication: PSORIASIS
  3. CLOBETASOL PROPIONATE [Concomitant]
     Indication: PSORIASIS

REACTIONS (3)
  - PSORIASIS [None]
  - RASH MACULAR [None]
  - WOUND [None]
